FAERS Safety Report 4443838-7 (Version None)
Quarter: 2004Q3

REPORT INFORMATION
  Report Type: 
  Country: None (occurrence: None)
  Receive Date: 20040729
  Receipt Date: 20040311
  Transmission Date: 20050211
  Serious: Yes (Hospitalization)
  Sender: FDA-Public Use
  Company Number: US-JNJFOC-20040302975

PATIENT
  Sex: Female

DRUGS (2)
  1. RISPERDAL [Suspect]
     Dosage: ORAL
     Route: 048
     Dates: start: 20031101, end: 20040309
  2. THORAZINE (CHLORPROMAZINE HYDROCHLORIDE) TABLETS [Concomitant]

REACTIONS (3)
  - COUGH [None]
  - DYSKINESIA [None]
  - ORTHOSTATIC HYPOTENSION [None]
